FAERS Safety Report 4761540-9 (Version None)
Quarter: 2005Q3

REPORT INFORMATION
  Report Type: 
  Country: None (occurrence: None)
  Receive Date: 20050901
  Receipt Date: 20041112
  Transmission Date: 20060218
  Serious: Yes (Other)
  Sender: FDA-Public Use
  Company Number: 15246

PATIENT
  Age: 47 Year
  Sex: Female
  Weight: 60.3284 kg

DRUGS (6)
  1. PACLITAXEL [Suspect]
     Indication: BREAST CANCER
     Dosage: 290MG, IV EVERY 2 WEEKS
     Route: 042
     Dates: start: 20041028, end: 20041111
  2. LORAZEPAM [Concomitant]
  3. ALOXI [Concomitant]
  4. DEXAMETHASONE [Concomitant]
  5. BENADRYL [Concomitant]
  6. PEPCID [Concomitant]

REACTIONS (2)
  - PHLEBITIS [None]
  - SKIN DISORDER [None]
